FAERS Safety Report 18568439 (Version 3)
Quarter: 2020Q4

REPORT INFORMATION
  Report Type: Spontaneous
  Country: IR (occurrence: IR)
  Receive Date: 20201202
  Receipt Date: 20201219
  Transmission Date: 20210114
  Serious: Yes (Other)
  Sender: FDA-Public Use
  Company Number: IR-ACCORD-209741

PATIENT
  Age: 37 Year
  Sex: Female

DRUGS (3)
  1. HYDROXYCHLOROQUINE [Suspect]
     Active Substance: HYDROXYCHLOROQUINE
     Indication: CUTANEOUS LUPUS ERYTHEMATOSUS
  2. CLOBETASOL [Concomitant]
     Active Substance: CLOBETASOL
     Indication: CUTANEOUS LUPUS ERYTHEMATOSUS
     Route: 061
  3. PIMECROLIMUS. [Concomitant]
     Active Substance: PIMECROLIMUS
     Indication: CUTANEOUS LUPUS ERYTHEMATOSUS
     Route: 061

REACTIONS (3)
  - Hallucinations, mixed [Recovered/Resolved]
  - Nightmare [Recovered/Resolved]
  - Depressed level of consciousness [Recovered/Resolved]
